FAERS Safety Report 8989207 (Version 1)
Quarter: 2012Q4

REPORT INFORMATION
  Report Type: 
  Country: CH (occurrence: CH)
  Receive Date: 20121228
  Receipt Date: 20121228
  Transmission Date: 20130627
  Serious: Yes (Other)
  Sender: FDA-Public Use
  Company Number: CH-SANOFI-AVENTIS-2012SA093491

PATIENT
  Age: 48 Year
  Sex: Male

DRUGS (6)
  1. RIFAMPICIN [Suspect]
     Indication: ENDOCARDITIS
     Route: 065
  2. BOSENTAN [Interacting]
     Indication: PULMONARY ARTERIAL HYPERTENSION
     Route: 065
  3. TORSEMIDE [Concomitant]
     Indication: PULMONARY ARTERIAL HYPERTENSION
  4. PERINDOPRIL [Concomitant]
     Indication: PULMONARY ARTERIAL HYPERTENSION
  5. DIGOXIN [Concomitant]
     Indication: PULMONARY ARTERIAL HYPERTENSION
  6. CIPROFLOXACIN [Concomitant]
     Indication: ENDOCARDITIS

REACTIONS (5)
  - Pulmonary arterial pressure increased [Unknown]
  - Drug interaction [Unknown]
  - Dyspnoea [Unknown]
  - Brain natriuretic peptide [Unknown]
  - General physical health deterioration [Unknown]
